FAERS Safety Report 26071088 (Version 4)
Quarter: 2025Q4

REPORT INFORMATION
  Report Type: Spontaneous
  Country: GB (occurrence: GB)
  Receive Date: 20251120
  Receipt Date: 20251214
  Transmission Date: 20260118
  Serious: Yes (Other)
  Sender: PFIZER
  Company Number: None

PATIENT
  Age: 74 Year
  Sex: Female
  Weight: 62 kg

DRUGS (8)
  1. FILGRASTIM [Suspect]
     Active Substance: FILGRASTIM
     Dosage: 300 UG, EVERY 1-2 WEEKS
     Route: 058
     Dates: start: 202101
  2. FILGRASTIM [Suspect]
     Active Substance: FILGRASTIM
     Dosage: 300 UG, WEEKLY
     Route: 058
     Dates: start: 202201
  3. FILGRASTIM [Suspect]
     Active Substance: FILGRASTIM
     Dosage: 300 UG, WEEKLY
     Route: 058
     Dates: start: 202209
  4. FILGRASTIM [Suspect]
     Active Substance: FILGRASTIM
     Dosage: 300 UG, WEEKLY
     Route: 058
     Dates: start: 20251114, end: 20251115
  5. CANDESARTAN [Concomitant]
     Active Substance: CANDESARTAN
     Dosage: 2 MG, 1X/DAY
     Route: 048
     Dates: start: 20220114
  6. EPOETIN BETA [Concomitant]
     Active Substance: ERYTHROPOIETIN
     Dosage: 60000 DF, WEEKLY
     Route: 058
     Dates: start: 20220101
  7. FOLIC ACID [Concomitant]
     Active Substance: FOLIC ACID
     Dosage: 5 MG, 1X/DAY
     Route: 048
     Dates: start: 20210629
  8. HYDROXOCOBALAMIN [Concomitant]
     Active Substance: HYDROXOCOBALAMIN
     Dosage: 1 MG, EVERY 3 MONTHS
     Route: 030
     Dates: start: 20180105

REACTIONS (3)
  - Chronic kidney disease [Unknown]
  - Glomerulonephritis [Unknown]
  - Palpitations [Unknown]
